FAERS Safety Report 7037958-0 (Version None)
Quarter: 2010Q4

REPORT INFORMATION
  Report Type: 
  Country: None (occurrence: None)
  Receive Date: 20101011
  Receipt Date: 20101004
  Transmission Date: 20110411
  Serious: Yes (Other)
  Sender: FDA-Public Use
  Company Number: ZA-AMGEN-QUU442619

PATIENT
  Sex: Female

DRUGS (3)
  1. NEUPOGEN [Suspect]
     Indication: NEUTROPENIA
     Dates: start: 20100701
  2. PEGASYS [Suspect]
     Indication: HEPATITIS C
     Dates: start: 20100224
  3. COPEGUS [Suspect]
     Indication: HEPATITIS C
     Dates: start: 20100224

REACTIONS (4)
  - ANAEMIA [None]
  - EYE IRRITATION [None]
  - NEUTROPENIA [None]
  - SWOLLEN TONGUE [None]
